FAERS Safety Report 7704403-9 (Version None)
Quarter: 2011Q3

REPORT INFORMATION
  Report Type: 
  Country: None (occurrence: None)
  Receive Date: 20110823
  Receipt Date: 20110816
  Transmission Date: 20111222
  Serious: Yes (Hospitalization, Other)
  Sender: FDA-Public Use
  Company Number: US-BRISTOL-MYERS SQUIBB COMPANY-15851777

PATIENT
  Age: 71 Year
  Sex: Female
  Weight: 80 kg

DRUGS (7)
  1. GLUCOPHAGE [Concomitant]
  2. PAMELOR [Concomitant]
  3. CIPROFLOXACIN [Concomitant]
  4. IMODIUM [Concomitant]
  5. IPILIMUMAB [Suspect]
     Indication: MALIGNANT MELANOMA
     Dosage: C2: 08JUN11, 832 MG
     Route: 042
     Dates: start: 20110517, end: 20110608
  6. NOVOLOG [Concomitant]
     Dosage: 1 DF= 100UNIT/ML
  7. LIPITOR [Concomitant]

REACTIONS (4)
  - ENTERITIS INFECTIOUS [None]
  - URINARY TRACT INFECTION [None]
  - DIARRHOEA [None]
  - HYPERGLYCAEMIA [None]
